FAERS Safety Report 14169028 (Version 1)
Quarter: 2017Q4

REPORT INFORMATION
  Report Type: Spontaneous
  Country: FR (occurrence: FR)
  Receive Date: 20171107
  Receipt Date: 20171107
  Transmission Date: 20180321
  Serious: Yes (Other)
  Sender: FDA-Public Use
  Company Number: FR-MYLANLABS-2017M1069280

PATIENT
  Sex: Male

DRUGS (5)
  1. SOMATOSTATIN [Concomitant]
     Active Substance: SOMATOSTATIN
     Indication: PROTEIN-LOSING GASTROENTEROPATHY
     Route: 058
  2. ASPIRIN. [Concomitant]
     Active Substance: ASPIRIN
     Indication: ANTICOAGULANT THERAPY
     Route: 065
  3. HEPARIN [Concomitant]
     Active Substance: HEPARIN SODIUM
     Indication: ANTICOAGULANT THERAPY
     Route: 058
  4. SOMATOSTATIN [Concomitant]
     Active Substance: SOMATOSTATIN
     Dosage: 25MICROG/HOUR AND THEN STARTED VIA SUBCUTANEOUS
     Route: 042
  5. BUDESONIDE. [Suspect]
     Active Substance: BUDESONIDE
     Indication: PROTEIN-LOSING GASTROENTEROPATHY
     Dosage: 9MG/DAY, LATER TAPERED TO AN UNKNOWN DOSE BECAUSE OF SIDE EFFECTS
     Route: 048

REACTIONS (2)
  - Epstein-Barr virus infection [Unknown]
  - Non-Hodgkin^s lymphoma [Unknown]
